FAERS Safety Report 9457455 (Version 1)
Quarter: 2013Q3

REPORT INFORMATION
  Report Type: Spontaneous
  Country: US (occurrence: None)
  Receive Date: 20130812
  Receipt Date: 20130812
  Transmission Date: 20140515
  Serious: Yes (Life-Threatening)
  Sender: FDA-Public Use
  Company Number: None

PATIENT
  Age: 42 Year
  Sex: Female
  Weight: 67 kg

DRUGS (15)
  1. AZITHROMYCIN [Suspect]
     Indication: EVIDENCE BASED TREATMENT
     Dosage: 500 MG QD INTRAVENOUS
     Route: 042
     Dates: start: 20130808
  2. AZITHROMYCIN [Suspect]
     Indication: PNEUMONIA
     Dosage: 500 MG QD INTRAVENOUS
     Route: 042
     Dates: start: 20130808
  3. CALCIUM GLUCONATE [Concomitant]
  4. CEFTRIAXONE [Concomitant]
  5. CHLORHEXIDINE [Concomitant]
  6. EPINEPHRINE [Concomitant]
  7. LANSOPRAZOLE [Concomitant]
  8. METHYLPREDNISOLONE [Concomitant]
  9. FOLIC ACID [Concomitant]
  10. MVI [Concomitant]
  11. MAGNESIUM SULFATE [Concomitant]
  12. MAGNESIUM OXIDE [Concomitant]
  13. ROCURONIUM [Concomitant]
  14. POTASSIUM CHLORIDE [Concomitant]
  15. SODIUM CHLORIDE [Concomitant]

REACTIONS (3)
  - Electrocardiogram QT prolonged [None]
  - Ventricular fibrillation [None]
  - Torsade de pointes [None]
